FAERS Safety Report 7354376-6 (Version None)
Quarter: 2011Q1

REPORT INFORMATION
  Report Type: 
  Country: None (occurrence: None)
  Receive Date: 20110316
  Receipt Date: 20110304
  Transmission Date: 20110831
  Serious: Yes (Other)
  Sender: FDA-Public Use
  Company Number: PT-JNJFOC-20101003333

PATIENT
  Age: 49 Year
  Sex: Female

DRUGS (8)
  1. REMICADE [Suspect]
     Route: 042
  2. REMICADE [Suspect]
     Route: 042
  3. REMICADE [Suspect]
     Route: 042
  4. REMICADE [Suspect]
     Route: 042
  5. HYDROCORTISONE [Concomitant]
     Indication: COLITIS ULCERATIVE
  6. REMICADE [Suspect]
     Indication: COLITIS ULCERATIVE
     Route: 042
  7. REMICADE [Suspect]
     Route: 042
  8. REMICADE [Suspect]
     Route: 042

REACTIONS (2)
  - COLITIS ULCERATIVE [None]
  - TUBERCULOSIS [None]
